FAERS Safety Report 19244565 (Version 1)
Quarter: 2021Q2

REPORT INFORMATION
  Report Type: Spontaneous
  Country: US (occurrence: US)
  Receive Date: 20210512
  Receipt Date: 20210512
  Transmission Date: 20210717
  Serious: Yes (Hospitalization, Other)
  Sender: FDA-Public Use
  Company Number: US-CIPLA LTD.-2021US03379

PATIENT

DRUGS (27)
  1. INSULIN ASPART [Concomitant]
     Active Substance: INSULIN ASPART
     Indication: PRODUCT USED FOR UNKNOWN INDICATION
     Dosage: UNK, WITH MEALS AND AT BEDTIME, BID
     Route: 058
  2. WARFARIN [Interacting]
     Active Substance: WARFARIN
     Dosage: 6 MG, DAILY (AFTER DISCHARGE)
     Route: 065
  3. ASPIRIN EC [Concomitant]
     Active Substance: ASPIRIN
     Indication: PRODUCT USED FOR UNKNOWN INDICATION
     Dosage: 81 MG, DAILY
     Route: 048
  4. ATORVASTATIN [Concomitant]
     Active Substance: ATORVASTATIN
     Indication: PRODUCT USED FOR UNKNOWN INDICATION
     Dosage: 40 MILLIGRAM, QD (AT BEDTIME)
     Route: 048
  5. BENZONATATE. [Concomitant]
     Active Substance: BENZONATATE
     Indication: COUGH
     Dosage: 100 MILLIGRAM, PRN (EVERY 8 HOURS, AS NEEDED)
     Route: 048
  6. GLUCAGON. [Concomitant]
     Active Substance: GLUCAGON
     Indication: HYPOGLYCAEMIA
     Dosage: 1 MILLILITER AS DIRECTED IN HYPOGLYCEMIC PROTOCOL
     Route: 030
  7. WARFARIN [Interacting]
     Active Substance: WARFARIN
     Dosage: 5 MG, DAILY (RE?STARTED DOSE; DAY 09)
     Route: 065
  8. WARFARIN [Interacting]
     Active Substance: WARFARIN
     Dosage: 5 MG, DAILY, ON TUESDAYS AND FRIDAYS
     Route: 065
  9. REMDESIVIR. [Interacting]
     Active Substance: REMDESIVIR
     Indication: COVID-19 PNEUMONIA
     Dosage: 200 MILLIGRAM, SINGLE
     Route: 042
  10. ACETAMINOPHEN. [Concomitant]
     Active Substance: ACETAMINOPHEN
     Indication: PYREXIA
  11. DORZOLAMIDE [Concomitant]
     Active Substance: DORZOLAMIDE
     Indication: PRODUCT USED FOR UNKNOWN INDICATION
     Dosage: 1 GTT, TID (IN RIGHT EYE)
     Route: 047
  12. PANTOPRAZOLE [Concomitant]
     Active Substance: PANTOPRAZOLE
     Indication: PRODUCT USED FOR UNKNOWN INDICATION
     Dosage: 20 MILLIGRAM, QD (WITH BREAKFAST)
     Route: 048
  13. TAMSULOSIN [Concomitant]
     Active Substance: TAMSULOSIN
     Indication: PRODUCT USED FOR UNKNOWN INDICATION
     Dosage: 0.4 MILLIGRAM, QD (AT BEDTIME)
     Route: 048
  14. DOCUSATE [Concomitant]
     Active Substance: DOCUSATE
     Indication: PRODUCT USED FOR UNKNOWN INDICATION
     Dosage: 250 MG DAILY
     Route: 048
  15. WARFARIN [Suspect]
     Active Substance: WARFARIN
     Indication: PULMONARY EMBOLISM
     Dosage: 7.5 MG DAILY EXCEPT 5 MG ON TUESDAYS AND FRIDAYS
     Route: 065
  16. HEPARIN FLUSH [Concomitant]
     Active Substance: HEPARIN SODIUM
     Indication: CATHETER MANAGEMENT
     Dosage: 300 UNITS, BID (EVERY 12 HOURS)
     Route: 042
  17. METOPROLOL TARTRATE. [Concomitant]
     Active Substance: METOPROLOL TARTRATE
     Indication: PRODUCT USED FOR UNKNOWN INDICATION
     Dosage: 25 MILLIGRAM, QID (EVERY 6 HRS)
     Route: 048
  18. REMDESIVIR. [Interacting]
     Active Substance: REMDESIVIR
     Dosage: 100 MILLIGRAM, DAILY
     Route: 042
  19. ACETAMINOPHEN. [Concomitant]
     Active Substance: ACETAMINOPHEN
     Indication: PAIN
     Dosage: 650 MILLIGRAM, PRN (650 MG ORALLY EVERY 8 HOURS AS NEEDED)
     Route: 048
  20. DEXAMETHASONE. [Interacting]
     Active Substance: DEXAMETHASONE
     Indication: COVID-19 PNEUMONIA
     Dosage: 6 MG, DAILY
     Route: 048
  21. ALBUTEROL;IPRATROPIUM [Concomitant]
     Active Substance: ALBUTEROL\IPRATROPIUM
     Indication: DYSPNOEA
     Dosage: 1 DOSAGE FORM, PRN (ONE PUFF, EVERY 4 HRS AS NEEDED)
  22. BUDESONIDE;FORMOTEROL [Concomitant]
     Active Substance: BUDESONIDE\FORMOTEROL
     Indication: PRODUCT USED FOR UNKNOWN INDICATION
     Dosage: 2 DOSAGE FORM, BID (TWO PUFFS, EVERY 12 HOURS)
  23. CHOLECALCIFEROL [Concomitant]
     Active Substance: CHOLECALCIFEROL
     Indication: PRODUCT USED FOR UNKNOWN INDICATION
     Dosage: 25 MCG DAILY
     Route: 048
  24. DEXTROSE. [Concomitant]
     Active Substance: DEXTROSE
     Indication: HYPOGLYCAEMIA
     Dosage: 25 ML (50%), AS DIRECTED IN HYPOGLYCEMIC PROTOCOL
     Route: 042
  25. GLUCOSE LIQUID [Concomitant]
     Indication: HYPOGLYCAEMIA
     Dosage: 15 GRAM AS DIRECTED IN HYPOGLYCEMIC PROTOCOL
     Route: 048
  26. SENNA [Concomitant]
     Active Substance: SENNA LEAF\SENNOSIDES\SENNOSIDES A AND B
     Indication: PRODUCT USED FOR UNKNOWN INDICATION
     Dosage: 17.2 MG DAILY
     Route: 048
  27. NORMAL SALINE [Concomitant]
     Active Substance: SODIUM CHLORIDE
     Indication: CATHETER MANAGEMENT
     Dosage: 10 MILLILITER, BID (EVERY 12 HOURS)
     Route: 042

REACTIONS (2)
  - Anticoagulation drug level above therapeutic [Recovered/Resolved]
  - Drug interaction [Unknown]
